FAERS Safety Report 6346057-2 (Version None)
Quarter: 2009Q3

REPORT INFORMATION
  Report Type: 
  Country: None (occurrence: None)
  Receive Date: 20090909
  Receipt Date: 20090828
  Transmission Date: 20100115
  Serious: Yes (Hospitalization)
  Sender: FDA-Public Use
  Company Number: US-CELGENEUS-163-21880-09082197

PATIENT
  Sex: Female

DRUGS (3)
  1. REVLIMID [Suspect]
     Indication: DRUG USE FOR UNKNOWN INDICATION
     Route: 048
     Dates: start: 20090501, end: 20090801
  2. REVLIMID [Suspect]
     Route: 048
     Dates: start: 20090401, end: 20090401
  3. REVLIMID [Suspect]
     Dosage: 10-20 MG
     Route: 048
     Dates: start: 20090201, end: 20090401

REACTIONS (4)
  - GALLBLADDER OPERATION [None]
  - INFECTION [None]
  - PNEUMONIA [None]
  - RASH [None]
